FAERS Safety Report 10367387 (Version 1)
Quarter: 2014Q3

REPORT INFORMATION
  Report Type: Spontaneous
  Country: US (occurrence: US)
  Receive Date: 20140807
  Receipt Date: 20140807
  Transmission Date: 20150326
  Serious: No
  Sender: FDA-Public Use
  Company Number: US-TEVA-500299USA

PATIENT
  Sex: Male
  Weight: 68.1 kg

DRUGS (4)
  1. AMANTADINE [Concomitant]
     Active Substance: AMANTADINE
     Indication: PARKINSON^S DISEASE
  2. AVODART [Concomitant]
     Active Substance: DUTASTERIDE
     Indication: UROGENITAL DISORDER
  3. AZILECT [Suspect]
     Active Substance: RASAGILINE MESYLATE
     Indication: PARKINSON^S DISEASE
     Route: 065
  4. FLOMAX [Concomitant]
     Active Substance: TAMSULOSIN HYDROCHLORIDE
     Indication: UROGENITAL DISORDER

REACTIONS (3)
  - Dysphonia [Not Recovered/Not Resolved]
  - Fall [Not Recovered/Not Resolved]
  - Adverse event [Not Recovered/Not Resolved]
